FAERS Safety Report 8185448-4 (Version None)
Quarter: 2012Q1

REPORT INFORMATION
  Report Type: 
  Country: None (occurrence: None)
  Receive Date: 20120216
  Receipt Date: 20111128
  Transmission Date: 20120608
  Serious: Yes (Other)
  Sender: FDA-Public Use
  Company Number: 2011SCPR003449

PATIENT
  Age: 62 Year
  Sex: Female

DRUGS (2)
  1. PROPAFENONE HCL [Suspect]
     Indication: HEART RATE IRREGULAR
     Dosage: UNK, TWICE A DAY, ORAL
     Route: 048
     Dates: start: 20110101, end: 20111201
  2. VERAPAMIL [Concomitant]

REACTIONS (1)
  - HEART RATE IRREGULAR [None]
